FAERS Safety Report 23214074 (Version 1)
Quarter: 2023Q4

REPORT INFORMATION
  Report Type: Spontaneous
  Country: JP (occurrence: JP)
  Receive Date: 20231121
  Receipt Date: 20231121
  Transmission Date: 20240110
  Serious: Yes (Death)
  Sender: FDA-Public Use
  Company Number: JP-BAYER-2023A118865

PATIENT
  Age: 8 Decade
  Sex: Female

DRUGS (1)
  1. VITRAKVI [Suspect]
     Active Substance: LAROTRECTINIB
     Indication: Colon cancer
     Route: 048

REACTIONS (2)
  - Colon cancer [Fatal]
  - Decubitus ulcer [Not Recovered/Not Resolved]
